FAERS Safety Report 17340441 (Version 1)
Quarter: 2020Q1

REPORT INFORMATION
  Report Type: Spontaneous
  Country: US (occurrence: US)
  Receive Date: 20200129
  Receipt Date: 20200129
  Transmission Date: 20200409
  Serious: No
  Sender: FDA-Public Use
  Company Number: US-ALLERGAN-1920367US

PATIENT
  Sex: Female

DRUGS (2)
  1. BOTOX [Suspect]
     Active Substance: ONABOTULINUMTOXINA
     Indication: URINARY INCONTINENCE
     Dosage: UNK, SINGLE
     Route: 043
  2. MYRBETRIQ [Suspect]
     Active Substance: MIRABEGRON
     Indication: URINARY INCONTINENCE
     Dosage: 50 MG
     Route: 048
     Dates: start: 201810

REACTIONS (5)
  - Infection [Unknown]
  - Hypertension [Unknown]
  - Insomnia [Unknown]
  - Drug ineffective [Unknown]
  - Pain in extremity [Unknown]
